FAERS Safety Report 6355084-0 (Version None)
Quarter: 2009Q3

REPORT INFORMATION
  Report Type: 
  Country: None (occurrence: None)
  Receive Date: 20090910
  Receipt Date: 20090901
  Transmission Date: 20100115
  Serious: Yes (Other)
  Sender: FDA-Public Use
  Company Number: 370792

PATIENT
  Age: 72 Year
  Sex: Female

DRUGS (6)
  1. PENTOSTATIN [Suspect]
     Indication: T-CELL PROLYMPHOCYTIC LEUKAEMIA
  2. (ALEMTUZUMAB) [Suspect]
     Indication: T-CELL PROLYMPHOCYTIC LEUKAEMIA
  3. (ANTIBIOTICS) [Concomitant]
  4. (ALBENDAZOLE) [Concomitant]
  5. SULFADIAZINE [Concomitant]
  6. PYRIMETHAMINE TAB [Concomitant]

REACTIONS (6)
  - BACTERIA STOOL IDENTIFIED [None]
  - DYSURIA [None]
  - GENERAL PHYSICAL HEALTH DETERIORATION [None]
  - IMMUNOSUPPRESSION [None]
  - MICROSPORIDIA INFECTION [None]
  - PANCYTOPENIA [None]
